FAERS Safety Report 9075047 (Version 1)
Quarter: 2013Q1

REPORT INFORMATION
  Report Type: Spontaneous
  Country: US (occurrence: US)
  Receive Date: 20130129
  Receipt Date: 20130129
  Transmission Date: 20140127
  Serious: No
  Sender: FDA-Public Use
  Company Number: US-BAUSCH-BL-2012-000644

PATIENT
  Age: 59 Year
  Sex: Male

DRUGS (2)
  1. ZYLET (LOTEPREDNOL ETABONATE 0.5% AND TOBRAMYCIN 0.3% OPHTHALMIC SUSPE [Suspect]
     Indication: CORNEAL DYSTROPHY
     Dosage: 1 DROP IN EYE(S); TWICE DAILY
     Route: 047
     Dates: start: 20120813, end: 20120824
  2. CARMELLOSE [Concomitant]
     Indication: DRY EYE

REACTIONS (3)
  - Ocular hyperaemia [Recovered/Resolved]
  - Lacrimation increased [Recovered/Resolved]
  - Visual impairment [Recovered/Resolved]
